FAERS Safety Report 10099266 (Version 3)
Quarter: 2014Q2

REPORT INFORMATION
  Report Type: Spontaneous
  Country: US (occurrence: US)
  Receive Date: 20140423
  Receipt Date: 20140507
  Transmission Date: 20141212
  Serious: Yes (Hospitalization)
  Sender: FDA-Public Use
  Company Number: US-PFIZER INC-2014108924

PATIENT
  Age: 66 Year
  Sex: Male

DRUGS (1)
  1. INLYTA [Suspect]
     Indication: RENAL CANCER
     Dosage: 5 MG, 2X/DAY (1 TABLET TWICE DAILY)
     Dates: start: 20140403

REACTIONS (5)
  - Renal failure [Recovered/Resolved]
  - Viral infection [Unknown]
  - Dehydration [Unknown]
  - Dysphonia [Unknown]
  - Hypertension [Recovered/Resolved]
